FAERS Safety Report 10015748 (Version 1)
Quarter: 2014Q1

REPORT INFORMATION
  Report Type: Spontaneous
  Country: AU (occurrence: AU)
  Receive Date: 20140317
  Receipt Date: 20140317
  Transmission Date: 20141002
  Serious: Yes (Death, Other)
  Sender: FDA-Public Use
  Company Number: AU-MYLANLABS-2014S1005152

PATIENT
  Age: 43 Year
  Sex: Male

DRUGS (23)
  1. CONJUGATED ESTROGENS [Suspect]
     Indication: GENDER IDENTITY DISORDER
     Route: 065
     Dates: start: 1995
  2. CYPROTERONE [Suspect]
     Indication: GENDER IDENTITY DISORDER
     Dosage: 50MG (FROM 2005)
     Route: 065
     Dates: start: 1995, end: 2006
  3. CYPROTERONE [Suspect]
     Indication: OFF LABEL USE
     Dosage: 50MG (FROM 2005)
     Route: 065
     Dates: start: 1995, end: 2006
  4. ESTRADIOL VALERATE [Suspect]
     Indication: GENDER IDENTITY DISORDER
     Route: 065
     Dates: start: 2005
  5. SPIRONOLACTONE [Suspect]
     Indication: GENDER IDENTITY DISORDER
     Route: 065
     Dates: start: 2006
  6. SPIRONOLACTONE [Suspect]
     Indication: OFF LABEL USE
     Route: 065
     Dates: start: 2006
  7. RISPERIDONE [Suspect]
     Indication: MAJOR DEPRESSION
     Route: 065
  8. RISPERIDONE [Suspect]
     Indication: OFF LABEL USE
     Route: 065
  9. OLANZAPINE [Suspect]
     Indication: MAJOR DEPRESSION
     Route: 065
  10. OLANZAPINE [Suspect]
     Indication: OFF LABEL USE
     Route: 065
  11. QUETIAPINE [Suspect]
     Indication: MAJOR DEPRESSION
     Route: 065
  12. DOXEPIN [Suspect]
     Indication: MAJOR DEPRESSION
     Route: 065
  13. DOXEPIN [Suspect]
     Indication: OVERDOSE
     Route: 065
  14. CLONAZEPAM [Suspect]
     Indication: MAJOR DEPRESSION
     Route: 065
  15. CLONAZEPAM [Suspect]
     Indication: OFF LABEL USE
     Route: 065
  16. LEVOMEPROMAZINE [Suspect]
     Indication: MAJOR DEPRESSION
     Route: 065
  17. FLUOXETINE [Suspect]
     Indication: MAJOR DEPRESSION
     Route: 065
  18. AMISULPRIDE [Suspect]
     Indication: MAJOR DEPRESSION
     Route: 065
     Dates: start: 201005
  19. AMISULPRIDE [Suspect]
     Indication: OVERDOSE
     Route: 065
     Dates: start: 201005
  20. ZOPICLONE [Concomitant]
     Route: 065
  21. DOXORUBICIN [Concomitant]
     Indication: INVASIVE DUCTAL BREAST CARCINOMA
     Dosage: DOSE-DENSE
     Route: 065
     Dates: start: 201009
  22. CYCLOPHOSPHAMIDE [Concomitant]
     Indication: INVASIVE DUCTAL BREAST CARCINOMA
     Route: 065
     Dates: start: 201009
  23. PACLITAXEL [Concomitant]
     Indication: INVASIVE DUCTAL BREAST CARCINOMA
     Dosage: DOSE-DENSE
     Route: 065
     Dates: end: 201101

REACTIONS (7)
  - Overdose [Fatal]
  - Overdose [Unknown]
  - Invasive ductal breast carcinoma [Recovering/Resolving]
  - Hyperprolactinaemia [Unknown]
  - Metastases to bone [Not Recovered/Not Resolved]
  - Metastases to liver [Not Recovered/Not Resolved]
  - Depression [Unknown]
